FAERS Safety Report 5635849-0 (Version None)
Quarter: 2008Q1

REPORT INFORMATION
  Report Type: 
  Country: None (occurrence: None)
  Receive Date: 20080221
  Receipt Date: 20080211
  Transmission Date: 20080703
  Serious: Yes (Hospitalization)
  Sender: FDA-Public Use
  Company Number: 2007S1012357

PATIENT
  Age: 11 Year
  Sex: Male

DRUGS (10)
  1. CYSTAGON [Suspect]
     Indication: CYSTINOSIS
     Dosage: 1600 MG, 100 MG; 4 TIMES A DAY, 200 MG; 4 TIMES A DAY
     Dates: start: 20070301, end: 20071113
  2. CYSTAGON [Suspect]
     Indication: CYSTINOSIS
     Dosage: 1600 MG, 100 MG; 4 TIMES A DAY, 200 MG; 4 TIMES A DAY
     Dates: start: 20071201, end: 20080101
  3. CYSTAGON [Suspect]
     Indication: CYSTINOSIS
     Dosage: 1600 MG, 100 MG; 4 TIMES A DAY, 200 MG; 4 TIMES A DAY
     Dates: start: 19971218
  4. CYSTAGON [Suspect]
     Indication: CYSTINOSIS
     Dosage: 1600 MG, 100 MG; 4 TIMES A DAY, 200 MG; 4 TIMES A DAY
     Dates: start: 20080101
  5. CALCIDIA [Concomitant]
  6. EPOGEN [Concomitant]
  7. HUMAN GROWTH HORMONE RECOMBINANT [Concomitant]
  8. 1-ALPHA [Concomitant]
  9. POTASSIUM BICARBONATE [Concomitant]
  10. CYSTEAMINE [Concomitant]

REACTIONS (8)
  - ANURIA [None]
  - BLOOD CREATININE INCREASED [None]
  - BLOOD POTASSIUM INCREASED [None]
  - BLOOD UREA INCREASED [None]
  - COMA [None]
  - CONVULSION [None]
  - ELECTROENCEPHALOGRAM ABNORMAL [None]
  - TACHYCARDIA [None]
